FAERS Safety Report 4553442-8 (Version None)
Quarter: 2005Q1

REPORT INFORMATION
  Report Type: 
  Country: None (occurrence: None)
  Receive Date: 20050112
  Receipt Date: 20050103
  Transmission Date: 20050727
  Serious: Yes (Death, Other)
  Sender: FDA-Public Use
  Company Number: EWC041241773

PATIENT
  Age: 22 Year
  Sex: Male

DRUGS (1)
  1. ZYPREXA [Suspect]
     Route: 048
     Dates: start: 20040101, end: 20040819

REACTIONS (2)
  - CARDIOMEGALY [None]
  - DRUG ABUSER [None]
